FAERS Safety Report 14563593 (Version 1)
Quarter: 2018Q1

REPORT INFORMATION
  Report Type: Spontaneous
  Country: IT (occurrence: IT)
  Receive Date: 20180222
  Receipt Date: 20180222
  Transmission Date: 20180509
  Serious: Yes (Hospitalization)
  Sender: FDA-Public Use
  Company Number: IT-MYLANLABS-2018M1011452

PATIENT
  Age: 69 Year
  Sex: Female

DRUGS (1)
  1. RYTMONORM [Suspect]
     Active Substance: PROPAFENONE
     Indication: ARRHYTHMIA
     Dosage: 450 MG, QD
     Route: 048
     Dates: start: 20100727, end: 20180126

REACTIONS (2)
  - Sinus tachycardia [Recovering/Resolving]
  - Product measured potency issue [Recovering/Resolving]

NARRATIVE: CASE EVENT DATE: 20180126
